FAERS Safety Report 17551125 (Version 1)
Quarter: 2020Q1

REPORT INFORMATION
  Report Type: Spontaneous
  Country: US (occurrence: US)
  Receive Date: 20200317
  Receipt Date: 20200317
  Transmission Date: 20200409
  Serious: No
  Sender: FDA-Public Use
  Company Number: US-ARBOR PHARMACEUTICALS, LLC-US-2019ARB001691

PATIENT
  Sex: Male

DRUGS (1)
  1. CETYLEV [Suspect]
     Active Substance: ACETYLCYSTEINE
     Indication: PRODUCTIVE COUGH

REACTIONS (2)
  - Off label use [Unknown]
  - Product quality issue [Unknown]
